FAERS Safety Report 7290782-6 (Version None)
Quarter: 2011Q1

REPORT INFORMATION
  Report Type: 
  Country: None (occurrence: None)
  Receive Date: 20110214
  Receipt Date: 20110208
  Transmission Date: 20110831
  Serious: Yes (Death, Hospitalization, Other)
  Sender: FDA-Public Use
  Company Number: US-ALEXION-A201001649

PATIENT
  Sex: Male

DRUGS (6)
  1. VERAPAMIL [Concomitant]
     Route: 048
  2. ASPIRIN [Concomitant]
     Route: 048
  3. SOLIRIS [Suspect]
     Dosage: 900 MG, UNK
     Route: 042
     Dates: start: 20080111
  4. LEVOTHYROXINE SODIUM [Concomitant]
     Route: 048
  5. SOLIRIS [Suspect]
     Indication: PAROXYSMAL NOCTURNAL HAEMOGLOBINURIA
     Dosage: 600 MG, UNK
     Route: 042
     Dates: start: 20071203
  6. PREDNISONE [Concomitant]
     Route: 048

REACTIONS (6)
  - RENAL FAILURE [None]
  - DISEASE PROGRESSION [None]
  - LEUKAEMIA [None]
  - RESPIRATORY FAILURE [None]
  - FEBRILE NEUTROPENIA [None]
  - CARDIAC FAILURE [None]
